FAERS Safety Report 7829473-9 (Version None)
Quarter: 2011Q4

REPORT INFORMATION
  Report Type: 
  Country: None (occurrence: None)
  Receive Date: 20111020
  Receipt Date: 20111017
  Transmission Date: 20120403
  Serious: Yes (Other)
  Sender: FDA-Public Use
  Company Number: CN-ROCHE-1004894

PATIENT

DRUGS (2)
  1. XELODA [Suspect]
     Indication: GASTRIC CANCER
  2. OXALIPLATIN [Suspect]
     Indication: GASTRIC CANCER

REACTIONS (1)
  - TOXICITY TO VARIOUS AGENTS [None]
